FAERS Safety Report 6234621-0 (Version None)
Quarter: 2009Q2

REPORT INFORMATION
  Report Type: 
  Country: None (occurrence: None)
  Receive Date: 20090616
  Receipt Date: 20090616
  Transmission Date: 20091009
  Serious: Yes (Other)
  Sender: FDA-Public Use
  Company Number: None

PATIENT
  Age: 52 Year
  Sex: Male
  Weight: 86.1834 kg

DRUGS (2)
  1. BUPROPION HYDROCHLORIDE [Suspect]
     Indication: ANXIETY
     Dosage: 300 1/DAY PO
     Route: 048
     Dates: start: 20090601, end: 20090611
  2. BUPROPION HYDROCHLORIDE [Suspect]
     Indication: DEPRESSION
     Dosage: 300 1/DAY PO
     Route: 048
     Dates: start: 20090601, end: 20090611

REACTIONS (4)
  - ANXIETY [None]
  - IRRITABILITY [None]
  - LETHARGY [None]
  - PRODUCT SUBSTITUTION ISSUE [None]
